FAERS Safety Report 7813467-3 (Version None)
Quarter: 2011Q4

REPORT INFORMATION
  Report Type: 
  Country: None (occurrence: None)
  Receive Date: 20111014
  Receipt Date: 20111004
  Transmission Date: 20120403
  Serious: No
  Sender: FDA-Public Use
  Company Number: US-BIOGENIDEC-2011BI021664

PATIENT
  Age: 57 Year
  Sex: Female

DRUGS (1)
  1. TYSABRI [Suspect]
     Indication: MULTIPLE SCLEROSIS
     Route: 042
     Dates: start: 20110125, end: 20110701

REACTIONS (8)
  - PARAESTHESIA [None]
  - MULTIPLE SCLEROSIS RELAPSE [None]
  - MUSCULAR WEAKNESS [None]
  - FATIGUE [None]
  - OPTIC NEURITIS [None]
  - MOBILITY DECREASED [None]
  - HYPOAESTHESIA [None]
  - BLOOD IRON DECREASED [None]
